FAERS Safety Report 19721878 (Version 4)
Quarter: 2021Q3

REPORT INFORMATION
  Report Type: Report from Study
  Country: None (occurrence: ES)
  Receive Date: 20210818
  Receipt Date: 20210916
  Transmission Date: 20211014
  Serious: Yes (Death, Hospitalization)
  Sender: FDA-Public Use
  Company Number: ES-ABBVIE-21K-144-3932212-00

PATIENT
  Age: 78 Year
  Sex: Female
  Weight: 56.6 kg

DRUGS (11)
  1. NEUPRO [Concomitant]
     Active Substance: ROTIGOTINE
     Indication: PARKINSON^S DISEASE
     Dosage: NEUPRO PATCHES?TWO?8+8
     Route: 061
  2. DUODOPA [Suspect]
     Active Substance: CARBIDOPA\LEVODOPA
     Dosage: NIGHT PUMP WITH CONTINUOUS DOSE AT 1.8 ML / H
     Route: 050
     Dates: start: 202107, end: 20210714
  3. DUODOPA [Suspect]
     Active Substance: CARBIDOPA\LEVODOPA
     Dosage: CD IN DAYTIME PUMP RAISED TO 5.8 ML/H, CD NIGHT PUMP RAISED TO 2.8 ML/H
     Route: 050
     Dates: start: 20210714, end: 20210723
  4. DUODOPA [Suspect]
     Active Substance: CARBIDOPA\LEVODOPA
     Dosage: DAY:MD:11ML, CD:6.5ML/H, ED:3ML. NIGHT:CD:3.5ML/H, ED:2.5ML DAY AND NIGHT TIME PUMP 12H
     Route: 050
     Dates: start: 20210723, end: 20210729
  5. DUODOPA [Suspect]
     Active Substance: CARBIDOPA\LEVODOPA
     Dosage: MORNING DOSE 9 ML
     Route: 050
     Dates: start: 20210622, end: 202107
  6. SINEMET [Suspect]
     Active Substance: CARBIDOPA\LEVODOPA
     Indication: PARKINSON^S DISEASE
     Dosage: SINEMET RETARD?AT NIGHT
     Route: 048
     Dates: start: 202106, end: 20210622
  7. DUODOPA [Suspect]
     Active Substance: CARBIDOPA\LEVODOPA
     Indication: PARKINSON^S DISEASE
     Dosage: CONTINUOUS DOSE 4.6 ML/H, EXTRA DOSE 2.5 ML
     Route: 050
     Dates: start: 20210415, end: 20210506
  8. DUODOPA [Suspect]
     Active Substance: CARBIDOPA\LEVODOPA
     Dosage: CONTINUOUS DOSE 4.4 ML/H, EXTRA DOSE 2 ML
     Route: 050
     Dates: start: 20210604, end: 20210621
  9. DUODOPA [Suspect]
     Active Substance: CARBIDOPA\LEVODOPA
     Dosage: MORNING DOSE 8.5 ML, EXTRA DOSE 2.5 ML
     Route: 050
     Dates: start: 20210621, end: 20210622
  10. DUODOPA [Suspect]
     Active Substance: CARBIDOPA\LEVODOPA
     Dosage: DAY TIME PUMP: MD 9 ML, CD 5.8 ML/H, ED 2.5 ML. NIGHT PUMP: CD?2.8 ML/H AND ED 2.5 ML
     Route: 050
     Dates: start: 20210729, end: 20210811
  11. DUODOPA [Suspect]
     Active Substance: CARBIDOPA\LEVODOPA
     Dosage: MD 8.5 ML, CD 4.4 ML/H, ED 2.2 ML
     Route: 050
     Dates: start: 20210506, end: 20210604

REACTIONS (25)
  - Condition aggravated [Fatal]
  - Paraesthesia [Recovered/Resolved]
  - General physical health deterioration [Fatal]
  - Aphasia [Unknown]
  - Tremor [Not Recovered/Not Resolved]
  - Device dislocation [Recovered/Resolved]
  - Gait inability [Unknown]
  - Dyskinesia [Recovering/Resolving]
  - Nausea [Recovered/Resolved]
  - Condition aggravated [Unknown]
  - Parkinson^s disease [Unknown]
  - Balance disorder [Recovering/Resolving]
  - Pulmonary embolism [Fatal]
  - Limb deformity [Unknown]
  - Unevaluable event [Recovered/Resolved]
  - Freezing phenomenon [Unknown]
  - Pain in extremity [Recovering/Resolving]
  - Drug ineffective [Unknown]
  - Mobility decreased [Not Recovered/Not Resolved]
  - Gait disturbance [Not Recovered/Not Resolved]
  - Fall [Recovered/Resolved]
  - Therapeutic product effect incomplete [Unknown]
  - Clumsiness [Unknown]
  - Rectal haemorrhage [Fatal]
  - Feeling abnormal [Unknown]

NARRATIVE: CASE EVENT DATE: 2021
